FAERS Safety Report 8875233 (Version 2)
Quarter: 2012Q4

REPORT INFORMATION
  Report Type: 
  Country: GB (occurrence: GB)
  Receive Date: 20121029
  Receipt Date: 20121113
  Transmission Date: 20130627
  Serious: Yes (Other)
  Sender: FDA-Public Use
  Company Number: GB-WATSON-2012-12540

PATIENT
  Age: 76 Year
  Sex: Male
  Weight: 94 kg

DRUGS (11)
  1. TERBINAFINE HYDROCHLORIDE [Suspect]
     Indication: FUNGAL SKIN INFECTION
     Dosage: 250 mg, daily
     Route: 065
     Dates: start: 20120405, end: 20120604
  2. TERBINAFINE HYDROCHLORIDE [Suspect]
     Dosage: UNK, unknown
     Route: 065
  3. INDAPAMIDE [Concomitant]
     Indication: PRODUCT USED FOR UNKNOWN INDICATION
     Dosage: 1.5 mg, daily with breakfast
     Route: 065
  4. RAMIPRIL [Concomitant]
     Indication: PRODUCT USED FOR UNKNOWN INDICATION
     Dosage: 10 mg, daily with breakfast
     Route: 065
  5. FELODIPINE [Concomitant]
     Indication: PRODUCT USED FOR UNKNOWN INDICATION
     Dosage: 10 mg, daily with breakfast
     Route: 065
  6. NOVORAPID [Concomitant]
     Indication: PRODUCT USED FOR UNKNOWN INDICATION
     Dosage: 94 IU international unils daily 20 units with breakfast, 22 units with lunch and 52 units at teatime
     Route: 065
  7. ALLOPURINOL [Concomitant]
     Indication: PRODUCT USED FOR UNKNOWN INDICATION
     Dosage: 100 mg, bid At lunchtime
     Route: 065
  8. ASPIRIN [Concomitant]
     Indication: PRODUCT USED FOR UNKNOWN INDICATION
     Dosage: 75 mg, daily At teatime
     Route: 065
  9. ROSUVASTATIN [Concomitant]
     Indication: PRODUCT USED FOR UNKNOWN INDICATION
     Dosage: 10 mg, daily At teatime
     Route: 065
  10. TRAMADOL [Concomitant]
     Indication: ANALGESIC THERAPY
     Dosage: 50 mg, prn
     Route: 065
  11. INSULIN DETEMIR [Concomitant]
     Indication: PRODUCT USED FOR UNKNOWN INDICATION
     Dosage: 32 units with breakfast and 32 units in
     Route: 065

REACTIONS (4)
  - Dysgeusia [Recovered/Resolved]
  - Ageusia [Recovered/Resolved]
  - Appetite disorder [Recovered/Resolved]
  - Drug ineffective [Recovered/Resolved]
